FAERS Safety Report 8484838-X (Version None)
Quarter: 2012Q3

REPORT INFORMATION
  Report Type: 
  Country: None (occurrence: None)
  Receive Date: 20120703
  Receipt Date: 20120621
  Transmission Date: 20120928
  Serious: Yes (Hospitalization)
  Sender: FDA-Public Use
  Company Number: CA-VERTEX PHARMACEUTICALS INC.-AE-2012-007338

PATIENT
  Sex: Male

DRUGS (4)
  1. INCIVEK [Suspect]
     Indication: HEPATITIS C
     Dates: start: 20120502, end: 20120511
  2. MORPHINE [Concomitant]
  3. RIBAVIRIN [Concomitant]
     Indication: HEPATITIS C
     Dates: start: 20120502, end: 20120511
  4. PEGINTERFERON ALFA-2A [Concomitant]
     Indication: HEPATITIS C
     Dates: start: 20120502, end: 20120511

REACTIONS (4)
  - ASCITES [None]
  - PERITONITIS BACTERIAL [None]
  - HEPATIC ENCEPHALOPATHY [None]
  - HEPATIC ENZYME INCREASED [None]
